FAERS Safety Report 20568129 (Version 1)
Quarter: 2022Q1

REPORT INFORMATION
  Report Type: Spontaneous
  Country: US (occurrence: US)
  Receive Date: 20220308
  Receipt Date: 20220308
  Transmission Date: 20220423
  Serious: No
  Sender: FDA-Public Use
  Company Number: US-BAUSCH-BL-2022-005919

PATIENT
  Sex: Male

DRUGS (1)
  1. XIFAXAN [Suspect]
     Active Substance: RIFAXIMIN
     Indication: Liver disorder
     Route: 065

REACTIONS (7)
  - Muscle tightness [Unknown]
  - Joint stiffness [Unknown]
  - Feeling abnormal [Unknown]
  - Platelet count abnormal [Unknown]
  - Confusional state [Unknown]
  - Rash [Unknown]
  - Muscle spasms [Unknown]
